FAERS Safety Report 14315032 (Version 3)
Quarter: 2018Q1

REPORT INFORMATION
  Report Type: Spontaneous
  Country: ES (occurrence: ES)
  Receive Date: 20171221
  Receipt Date: 20180103
  Transmission Date: 20180509
  Serious: Yes (Other)
  Sender: FDA-Public Use
  Company Number: ES-TEVA-2017-ES-837622

PATIENT
  Age: 3 Year
  Sex: Male

DRUGS (6)
  1. ZOVIRAX 400 MG/5 ML [Concomitant]
     Indication: OPPORTUNISTIC INFECTION PROPHYLAXIS
     Dosage: 1 FRASCO DE 200 ML AT A DOSE OF 6 ML ONCE A DAY
     Route: 048
     Dates: start: 20170201
  2. HIDROCORTISONA [Concomitant]
     Active Substance: HYDROCORTISONE
     Dosage: 8 MILLIGRAM DAILY; 8 MG
     Route: 048
     Dates: start: 20170808
  3. VINCRISTINE [Suspect]
     Active Substance: VINCRISTINE
     Indication: ACUTE LYMPHOCYTIC LEUKAEMIA
     Route: 042
     Dates: start: 20170808, end: 20170808
  4. DOXORUBICIN [Suspect]
     Active Substance: DOXORUBICIN
     Indication: ACUTE LYMPHOCYTIC LEUKAEMIA
     Route: 042
     Dates: start: 20170808, end: 20170808
  5. SEPTRIN PEDIATRICO 8 MG/40 MG/ML [Concomitant]
     Indication: OPPORTUNISTIC INFECTION PROPHYLAXIS
     Dosage: 1 FRASCO DE 100 ML AT 10 MG ONCE A DAY
     Route: 048
     Dates: start: 20170201
  6. DEXAMETASONA [Suspect]
     Active Substance: DEXAMETHASONE
     Indication: ACUTE LYMPHOCYTIC LEUKAEMIA
     Route: 042
     Dates: start: 20170718, end: 20170806

REACTIONS (2)
  - Anal inflammation [Recovered/Resolved]
  - Stomatitis [Recovered/Resolved]

NARRATIVE: CASE EVENT DATE: 20170816
